FAERS Safety Report 11248152 (Version 1)
Quarter: 2015Q2

REPORT INFORMATION
  Report Type: Report from Study
  Country: US (occurrence: None)
  Receive Date: 20150617
  Receipt Date: 20150617
  Transmission Date: 20150821
  Serious: No
  Sender: FDA-Public Use
  Company Number: 2014TASUS000513

PATIENT
  Age: 39 Year
  Sex: Female
  Weight: 74.4 kg

DRUGS (9)
  1. HETLIOZ [Suspect]
     Active Substance: TASIMELTEON
     Indication: CIRCADIAN RHYTHM SLEEP DISORDER
     Route: 048
     Dates: start: 20140807
  2. ATROVENT [Concomitant]
     Active Substance: IPRATROPIUM BROMIDE
  3. MAXITROL (DEXAMETHASONE, NEOMYCIN SULFATE, POLYMYXIN B SULFATE) [Concomitant]
  4. DUNONEB (IPRATROPIUM BROMIDE, SALBUTAMOL SULFATE) [Concomitant]
  5. PREDNISOLONE (PREDNISOLONE ACETATE) [Concomitant]
     Active Substance: PREDNISOLONE ACETATE
  6. HYDROCODONE (HYDROCODONE BITARTRATE) [Concomitant]
     Active Substance: HYDROCODONE BITARTRATE
  7. INDERAL [Concomitant]
     Active Substance: PROPRANOLOL HYDROCHLORIDE
  8. FLOVENT [Concomitant]
     Active Substance: FLUTICASONE PROPIONATE
  9. PROAIR HFA [Concomitant]
     Active Substance: ALBUTEROL SULFATE

REACTIONS (1)
  - Drug ineffective [None]

NARRATIVE: CASE EVENT DATE: 20140807
